FAERS Safety Report 9828242 (Version 3)
Quarter: 2014Q2

REPORT INFORMATION
  Report Type: Spontaneous
  Country: US (occurrence: US)
  Receive Date: 20140117
  Receipt Date: 20140415
  Transmission Date: 20141212
  Serious: Yes (Hospitalization, Other)
  Sender: FDA-Public Use
  Company Number: US-CUBIST PHARMACEUTICAL, INC.-2014CBST000030

PATIENT
  Sex: 0

DRUGS (5)
  1. CUBICIN [Suspect]
     Indication: OSTEOMYELITIS
     Dosage: 400 UNK, QD
     Route: 042
     Dates: start: 20131031, end: 20131127
  2. CUBICIN [Suspect]
     Indication: OFF LABEL USE
  3. CRESTOR [Concomitant]
     Indication: PRODUCT USED FOR UNKNOWN INDICATION
     Dosage: 10 MG, UNK
     Route: 065
  4. LISINOPRIL [Concomitant]
     Indication: PRODUCT USED FOR UNKNOWN INDICATION
     Dosage: 10 MG, UNK
     Route: 065
  5. AUGMENTIN [Concomitant]
     Indication: OSTEOMYELITIS
     Dosage: 1 DF, BID
     Route: 048
     Dates: start: 20131104

REACTIONS (2)
  - Respiratory distress [Recovered/Resolved]
  - Pneumonitis [Recovered/Resolved]
